FAERS Safety Report 6117283-2 (Version None)
Quarter: 2009Q1

REPORT INFORMATION
  Report Type: 
  Country: None (occurrence: None)
  Receive Date: 20090314
  Receipt Date: 20090115
  Transmission Date: 20090719
  Serious: No
  Sender: FDA-Public Use
  Company Number: US-ABBOTT-09P-163-0497392-00

PATIENT
  Sex: Female
  Weight: 31.326 kg

DRUGS (3)
  1. HUMIRA [Suspect]
     Indication: CROHN'S DISEASE
     Route: 058
     Dates: start: 20081001
  2. INHALER [Concomitant]
     Indication: ASTHMA
  3. TUMS [Concomitant]
     Indication: MINERAL SUPPLEMENTATION

REACTIONS (9)
  - ANOREXIA [None]
  - DAYDREAMING [None]
  - DEHYDRATION [None]
  - DIARRHOEA [None]
  - DIZZINESS [None]
  - HAEMATOCHEZIA [None]
  - HYPERSOMNIA [None]
  - INDIFFERENCE [None]
  - SINUSITIS [None]
